FAERS Safety Report 25671452 (Version 1)
Quarter: 2025Q3

REPORT INFORMATION
  Report Type: Report from Study
  Country: US (occurrence: US)
  Receive Date: 20250812
  Receipt Date: 20250812
  Transmission Date: 20251021
  Serious: Yes (Hospitalization)
  Sender: JAZZ
  Company Number: US-JAZZ PHARMACEUTICALS-2024-US-013503

PATIENT
  Age: 15 Year
  Sex: Female

DRUGS (11)
  1. SODIUM OXYBATE [Suspect]
     Active Substance: SODIUM OXYBATE
     Indication: Narcolepsy
     Dosage: 3.75 GRAM, BID
  2. SODIUM OXYBATE [Suspect]
     Active Substance: SODIUM OXYBATE
     Indication: Cataplexy
  3. SODIUM OXYBATE [Suspect]
     Active Substance: SODIUM OXYBATE
     Indication: Somnolence
  4. SODIUM OXYBATE [Suspect]
     Active Substance: SODIUM OXYBATE
  5. SODIUM OXYBATE [Suspect]
     Active Substance: SODIUM OXYBATE
  6. SODIUM OXYBATE [Suspect]
     Active Substance: SODIUM OXYBATE
     Dosage: 2.5 GRAM, BID
  7. SODIUM OXYBATE [Suspect]
     Active Substance: SODIUM OXYBATE
  8. ZOLOFT [Concomitant]
     Active Substance: SERTRALINE HYDROCHLORIDE
  9. SUDAFED CO [Concomitant]
  10. AFRIN ALLERGY [Concomitant]
  11. SODIUM CHLORIDE [Concomitant]
     Active Substance: SODIUM CHLORIDE

REACTIONS (7)
  - Surgery [Recovering/Resolving]
  - Vitamin D deficiency [Unknown]
  - Nasopharyngitis [Recovering/Resolving]
  - Gingival swelling [Unknown]
  - Constipation [Unknown]
  - Product dose omission issue [Unknown]
  - Product administration interrupted [Unknown]

NARRATIVE: CASE EVENT DATE: 20240801
